FAERS Safety Report 8854594 (Version 6)
Quarter: 2012Q4

REPORT INFORMATION
  Report Type: 
  Country: NL (occurrence: NL)
  Receive Date: 20121023
  Receipt Date: 20121214
  Transmission Date: 20130627
  Serious: Yes (Death, Life-Threatening, Hospitalization, Other)
  Sender: FDA-Public Use
  Company Number: NL-GENZYME-CLOF-1002360

PATIENT
  Age: 64 None
  Sex: Female
  Weight: 71 kg

DRUGS (6)
  1. EVOLTRA [Suspect]
     Indication: ACUTE MYELOID LEUKAEMIA
     Dosage: 18 mg, qd
     Route: 042
     Dates: start: 20120918, end: 20120922
  2. EVOLTRA [Suspect]
     Dosage: 18 mg, qd (Induction II)
     Route: 042
     Dates: start: 20121023, end: 20121027
  3. CYTARABINE [Suspect]
     Indication: ACUTE MYELOID LEUKAEMIA
     Dosage: 360 mg, UNK
     Route: 042
     Dates: start: 20120918, end: 20120924
  4. CYTARABINE [Suspect]
     Dosage: 3600 mg, qd (Induction II)
     Route: 042
     Dates: start: 20121023, end: 20121028
  5. IDARUBICIN [Suspect]
     Indication: ACUTE MYELOID LEUKAEMIA
     Dosage: 21 mg, UNK
     Route: 042
     Dates: start: 20120918, end: 20120920
  6. AMSACRINE [Suspect]
     Indication: ACUTE MYELOID LEUKAEMIA
     Dosage: 215 mg, qd (induction II)
     Route: 042
     Dates: start: 20121026, end: 20121028

REACTIONS (9)
  - Metabolic acidosis [Recovered/Resolved]
  - Lung infection [Unknown]
  - Shock haemorrhagic [Recovered/Resolved]
  - Multi-organ failure [Fatal]
  - Duodenal ulcer haemorrhage [Recovered/Resolved]
  - Sepsis [Fatal]
  - Mucosal inflammation [Unknown]
  - Electrolyte imbalance [Unknown]
  - Diarrhoea [Unknown]
